FAERS Safety Report 6548258-7 (Version None)
Quarter: 2010Q1

REPORT INFORMATION
  Report Type: 
  Country: None (occurrence: None)
  Receive Date: 20100124
  Receipt Date: 20090409
  Transmission Date: 20100710
  Serious: No
  Sender: FDA-Public Use
  Company Number: US-ALLERGAN-0904915US

PATIENT
  Age: 90 Year
  Sex: Female

DRUGS (3)
  1. RESTASIS [Suspect]
     Indication: DRY EYE
     Dosage: UNK, UNK
     Route: 047
     Dates: start: 20080901
  2. SYNTHROID [Concomitant]
  3. CLONIDINE [Concomitant]

REACTIONS (1)
  - EYE IRRITATION [None]
